FAERS Safety Report 15318516 (Version 1)
Quarter: 2018Q3

REPORT INFORMATION
  Report Type: Spontaneous
  Country: US (occurrence: US)
  Receive Date: 20180817
  Receipt Date: 20180817
  Transmission Date: 20181010
  Serious: Yes (Other)
  Sender: FDA-Public Use
  Company Number: None

PATIENT
  Age: 30 Year
  Sex: Female
  Weight: 72.9 kg

DRUGS (4)
  1. ACYCLOVIR. [Concomitant]
     Active Substance: ACYCLOVIR
  2. SUBOXONE [Suspect]
     Active Substance: BUPRENORPHINE HYDROCHLORIDE\NALOXONE HYDROCHLORIDE
     Indication: PROPHYLAXIS
     Dosage: ?          QUANTITY:1 8MG/2MG;?
     Route: 060
     Dates: start: 20170203, end: 20180817
  3. SERTRALINE HCL [Concomitant]
     Active Substance: SERTRALINE HYDROCHLORIDE
  4. PRENATAL VITAMINS [Concomitant]
     Active Substance: VITAMINS

REACTIONS (8)
  - Product formulation issue [None]
  - Swollen tongue [None]
  - Product quality issue [None]
  - Skin necrosis [None]
  - Discomfort [None]
  - Tongue discomfort [None]
  - Eating disorder [None]
  - Glossodynia [None]

NARRATIVE: CASE EVENT DATE: 20180617
